FAERS Safety Report 24299904 (Version 1)
Quarter: 2024Q3

REPORT INFORMATION
  Report Type: Report from Study
  Country: SE (occurrence: SE)
  Receive Date: 20240909
  Receipt Date: 20240909
  Transmission Date: 20241017
  Serious: Yes (Other)
  Sender: ABBVIE
  Company Number: SE-ABBVIE-5908804

PATIENT
  Sex: Male

DRUGS (3)
  1. CARBIDOPA\LEVODOPA [Suspect]
     Active Substance: CARBIDOPA\LEVODOPA
     Indication: Parkinson^s disease
     Dosage: CURRENT DOSAGE: MORNING DOSE: 6 ML, CONTINUOUS DOSE : 4.1 ML/H, EXTRA DOSE: 1.0 ML
     Route: 050
     Dates: start: 20240902
  2. CARBIDOPA\LEVODOPA [Suspect]
     Active Substance: CARBIDOPA\LEVODOPA
     Dosage: CONTINUOUS DOSE REDUCED FROM 4.4 ML/H TO 4.1 ML/H
     Route: 050
     Dates: start: 20240902, end: 20240902
  3. CARBIDOPA\LEVODOPA [Suspect]
     Active Substance: CARBIDOPA\LEVODOPA
     Dosage: THERAPY DURATION: REMAINS AT 16H
     Route: 050
     Dates: start: 20130211

REACTIONS (6)
  - Colostomy [Unknown]
  - Dementia [Not Recovered/Not Resolved]
  - Hyperkinesia [Not Recovered/Not Resolved]
  - On and off phenomenon [Unknown]
  - Device dislocation [Not Recovered/Not Resolved]
  - Hallucination [Not Recovered/Not Resolved]
